FAERS Safety Report 20107193 (Version 2)
Quarter: 2021Q4

REPORT INFORMATION
  Report Type: Spontaneous
  Country: IN (occurrence: IN)
  Receive Date: 20211124
  Receipt Date: 20211203
  Transmission Date: 20220303
  Serious: Yes (Death, Life-Threatening, Hospitalization, Other)
  Sender: FDA-Public Use
  Company Number: IN-MLMSERVICE-20211112-3216907-1

PATIENT
  Age: 51 Year
  Sex: Male

DRUGS (4)
  1. ANTI-THYMOCYTE GLOBULIN (RABBIT) NOS [Suspect]
     Active Substance: LAPINE T-LYMPHOCYTE IMMUNE GLOBULIN
     Indication: Immunosuppressant drug therapy
     Dosage: UNK
  2. MYCOPHENOLATE MOFETIL [Suspect]
     Active Substance: MYCOPHENOLATE MOFETIL
     Indication: Immunosuppressant drug therapy
     Dosage: UNK
  3. TACROLIMUS [Suspect]
     Active Substance: TACROLIMUS
     Indication: Immunosuppressant drug therapy
     Dosage: UNK
  4. CORTICOSTEROID NOS [Suspect]
     Active Substance: CORTICOSTEROID NOS
     Indication: Immunosuppressant drug therapy
     Dosage: UNK

REACTIONS (9)
  - Hepatic failure [Fatal]
  - Mucormycosis [Fatal]
  - Liver abscess [Fatal]
  - Hepatic infection fungal [Fatal]
  - Abdominal pain upper [Fatal]
  - Hepatomegaly [Fatal]
  - Hepatic lesion [Fatal]
  - Pyrexia [Fatal]
  - Sepsis [Fatal]
